FAERS Safety Report 6109333-4 (Version None)
Quarter: 2009Q1

REPORT INFORMATION
  Report Type: 
  Country: None (occurrence: None)
  Receive Date: 20090309
  Receipt Date: 20090309
  Transmission Date: 20090719
  Serious: Yes (Hospitalization)
  Sender: FDA-Public Use
  Company Number: None

PATIENT
  Sex: Female

DRUGS (2)
  1. REQUIP [Suspect]
     Indication: PARKINSON'S DISEASE
     Dosage: .5 MG TID PO
     Route: 048
     Dates: start: 20090220, end: 20090223
  2. MARIPEX -MIRAPEX- [Concomitant]

REACTIONS (5)
  - CONDITION AGGRAVATED [None]
  - HEART RATE INCREASED [None]
  - LETHARGY [None]
  - PARKINSON'S DISEASE [None]
  - VOMITING [None]
